FAERS Safety Report 12387570 (Version 1)
Quarter: 2016Q2

REPORT INFORMATION
  Report Type: Spontaneous
  Country: CN (occurrence: CN)
  Receive Date: 20160520
  Receipt Date: 20160520
  Transmission Date: 20160815
  Serious: Yes (Other)
  Sender: FDA-Public Use
  Company Number: CN-ROCHE-1759367

PATIENT
  Age: 3 Year
  Sex: Male

DRUGS (3)
  1. RANIBIZUMAB [Suspect]
     Active Substance: RANIBIZUMAB
     Indication: EXUDATIVE RETINOPATHY
     Dosage: 0.5 MG, QMO, (5 TIMES)
     Route: 031
  2. FLUOROMETHOLONE. [Suspect]
     Active Substance: FLUOROMETHOLONE
     Indication: EXUDATIVE RETINOPATHY
     Dosage: 1 GTT, QID
     Route: 047
  3. TOBRAMYCIN. [Suspect]
     Active Substance: TOBRAMYCIN
     Indication: EXUDATIVE RETINOPATHY
     Dosage: UNK, QID
     Route: 047

REACTIONS (2)
  - Cataract [Unknown]
  - Product use issue [Unknown]
